FAERS Safety Report 4731692-5 (Version None)
Quarter: 2005Q3

REPORT INFORMATION
  Report Type: 
  Country: None (occurrence: None)
  Receive Date: 20050802
  Receipt Date: 20050715
  Transmission Date: 20060218
  Serious: Yes (Other)
  Sender: FDA-Public Use
  Company Number: GB-JNJFOC-20050607423

PATIENT
  Sex: Male
  Weight: 80 kg

DRUGS (8)
  1. REMINYL [Suspect]
     Route: 065
  2. REMINYL [Suspect]
     Indication: DEMENTIA ALZHEIMER'S TYPE
     Route: 065
  3. FOLIC ACID [Concomitant]
  4. ACETYLSALICYLIC ACID SRT [Concomitant]
     Indication: PROPHYLAXIS
  5. ISOSORBIDE MONONITRATE [Concomitant]
  6. ATORVASTATIN CALCIUM [Concomitant]
  7. LERCANIDIPINE [Concomitant]
     Indication: HYPERTENSION
  8. ACETAMINOPHEN [Concomitant]
     Indication: ARTHRITIS
     Route: 065

REACTIONS (3)
  - FALL [None]
  - HEPATIC STEATOSIS [None]
  - LIVER FUNCTION TEST ABNORMAL [None]
